FAERS Safety Report 4867405-6 (Version None)
Quarter: 2005Q4

REPORT INFORMATION
  Report Type: 
  Country: None (occurrence: None)
  Receive Date: 20051222
  Receipt Date: 20051222
  Transmission Date: 20060501
  Serious: Yes (Other)
  Sender: FDA-Public Use
  Company Number: None

PATIENT
  Sex: Male
  Weight: 68.0396 kg

DRUGS (1)
  1. ZYRTEC [Suspect]
     Indication: URTICARIA
     Dosage: 10 M 1 DAILY PO
     Route: 048
     Dates: start: 20050624, end: 20051024

REACTIONS (5)
  - ANHIDROSIS [None]
  - DRUG HYPERSENSITIVITY [None]
  - FEELING ABNORMAL [None]
  - PRURITUS [None]
  - URTICARIA [None]
